FAERS Safety Report 21609249 (Version 1)
Quarter: 2022Q4

REPORT INFORMATION
  Report Type: Spontaneous
  Country: FR (occurrence: FR)
  Receive Date: 20221117
  Receipt Date: 20221117
  Transmission Date: 20230113
  Serious: Yes (Hospitalization, Other)
  Sender: FDA-Public Use
  Company Number: FR-MYLANLABS-2019M1046244

PATIENT
  Sex: Female

DRUGS (2)
  1. ACETAMINOPHEN [Suspect]
     Active Substance: ACETAMINOPHEN
     Indication: Toothache
     Dosage: 6 GRAM, QD (6 G IN ONE DAY)
     Route: 065
  2. ACETAMINOPHEN [Suspect]
     Active Substance: ACETAMINOPHEN
     Indication: Procedural pain
     Dosage: 10 GRAM, QD (10 G IN ONE DAY)
     Route: 065

REACTIONS (12)
  - Overdose [Unknown]
  - Tremor [Recovered/Resolved]
  - Paraesthesia [Recovered/Resolved]
  - Hypertransaminasaemia [Recovered/Resolved]
  - Hepatic enzyme increased [Recovered/Resolved]
  - Panic disorder [Recovered/Resolved]
  - Malaise [Recovered/Resolved]
  - Asthenia [Recovered/Resolved]
  - Aspartate aminotransferase increased [Recovered/Resolved]
  - Alanine aminotransferase increased [Recovered/Resolved]
  - Vomiting [Recovered/Resolved]
  - Self-medication [Unknown]
